FAERS Safety Report 24531540 (Version 1)
Quarter: 2024Q4

REPORT INFORMATION
  Report Type: Spontaneous
  Country: MX (occurrence: MX)
  Receive Date: 20241022
  Receipt Date: 20241022
  Transmission Date: 20250115
  Serious: No
  Sender: ROCHE
  Company Number: MX-ROCHE-3465268

PATIENT
  Age: 1 Year
  Sex: Female
  Weight: 8.0 kg

DRUGS (5)
  1. PULMOZYME [Suspect]
     Active Substance: DORNASE ALFA
     Indication: Cystic fibrosis
     Route: 065
     Dates: start: 202203
  2. ALBUTEROL SULFATE\IPRATROPIUM BROMIDE [Concomitant]
     Active Substance: ALBUTEROL SULFATE\IPRATROPIUM BROMIDE
  3. FLUTICASONE [Concomitant]
     Active Substance: FLUTICASONE
  4. VITAMIN C [Concomitant]
     Active Substance: ASCORBIC ACID
  5. IRON [Concomitant]
     Active Substance: IRON

REACTIONS (2)
  - Off label use [Unknown]
  - No adverse event [Unknown]

NARRATIVE: CASE EVENT DATE: 20220301
